FAERS Safety Report 6001678-1 (Version None)
Quarter: 2008Q4

REPORT INFORMATION
  Report Type: 
  Country: None (occurrence: None)
  Receive Date: 20081215
  Receipt Date: 20081203
  Transmission Date: 20090506
  Serious: No
  Sender: FDA-Public Use
  Company Number: US-B.I. PHARMACEUTICALS,INC./RIDGEFIELD-2008-BP-18299BP

PATIENT
  Age: 74 Year
  Sex: Male

DRUGS (4)
  1. FLOMAX [Suspect]
     Indication: BENIGN PROSTATIC HYPERPLASIA
     Dosage: .4MG
     Route: 048
     Dates: start: 19980101, end: 20060101
  2. OXYCODONE HCL [Concomitant]
     Indication: NEUROPATHY PERIPHERAL
  3. HYDROCODONE BITARTRATE [Concomitant]
     Indication: NEUROPATHY PERIPHERAL
  4. LISINOPRIL [Concomitant]
     Indication: HYPERTENSION

REACTIONS (5)
  - DRY EYE [None]
  - EYE DISORDER [None]
  - EYE INJURY [None]
  - EYE IRRITATION [None]
  - EYE PAIN [None]
